FAERS Safety Report 5838539-4 (Version None)
Quarter: 2008Q3

REPORT INFORMATION
  Report Type: 
  Country: None (occurrence: None)
  Receive Date: 20080806
  Receipt Date: 20080729
  Transmission Date: 20090109
  Serious: Yes (Death)
  Sender: FDA-Public Use
  Company Number: 163-21880-08040846

PATIENT
  Age: 23 Year
  Sex: Male

DRUGS (2)
  1. REVLIMID (LENALIDOMIDE) (25 MILLIGRAM, CAPSULES) [Suspect]
     Indication: BRAIN NEOPLASM
     Dosage: 100 MG, 4 IN 1 D, ORAL
     Route: 048
     Dates: start: 20070911, end: 20071001
  2. REVLIMID (LENALIDOMIDE) (25 MILLIGRAM, CAPSULES) [Suspect]
     Indication: FIBROSARCOMA
     Dosage: 100 MG, 4 IN 1 D, ORAL
     Route: 048
     Dates: start: 20070911, end: 20071001

REACTIONS (2)
  - BRAIN NEOPLASM [None]
  - NEOPLASM PROGRESSION [None]
